FAERS Safety Report 21664258 (Version 1)
Quarter: 2022Q4

REPORT INFORMATION
  Report Type: Spontaneous
  Country: US (occurrence: None)
  Receive Date: 20221129
  Receipt Date: 20221129
  Transmission Date: 20230112
  Serious: Yes (Hospitalization)
  Sender: FDA-Public Use
  Company Number: None

PATIENT
  Sex: Male

DRUGS (17)
  1. HUMIRA [Suspect]
     Active Substance: ADALIMUMAB
     Indication: Crohn^s disease
     Route: 058
     Dates: start: 20171018
  2. CYANOCOBALAM [Concomitant]
  3. DICYCLOMINE [Concomitant]
     Active Substance: DICYCLOMINE HYDROCHLORIDE
  4. DILAUDID [Concomitant]
     Active Substance: HYDROMORPHONE HYDROCHLORIDE
  5. ENTOCORT EC [Concomitant]
  6. FOLIC ACID [Concomitant]
     Active Substance: FOLIC ACID
  7. HYDROMORPHONE [Concomitant]
     Active Substance: HYDROMORPHONE
  8. IRON SUPPLMT DRO [Concomitant]
  9. LOSARTAN POT TAB [Concomitant]
  10. MERCAPTOPUR [Concomitant]
  11. PANTOPRAZOLE [Concomitant]
  12. PANTOPRAZOLE [Concomitant]
  13. PREDNISONE [Concomitant]
  14. PREDNISONE [Concomitant]
  15. SILDENAFIL [Concomitant]
     Active Substance: SILDENAFIL
  16. TRAMADOL HCL [Concomitant]
     Active Substance: TRAMADOL HYDROCHLORIDE
  17. VITAMIN D3 [Concomitant]
     Active Substance: CHOLECALCIFEROL

REACTIONS (6)
  - COVID-19 [None]
  - Condition aggravated [None]
  - Weight fluctuation [None]
  - Diarrhoea [None]
  - Abdominal pain [None]
  - Therapy interrupted [None]
